FAERS Safety Report 9408065 (Version 2)
Quarter: 2013Q3

REPORT INFORMATION
  Report Type: Spontaneous
  Country: IE (occurrence: IE)
  Receive Date: 20130718
  Receipt Date: 20130806
  Transmission Date: 20140515
  Serious: Yes (Other)
  Sender: FDA-Public Use
  Company Number: IE-VERTEX PHARMACEUTICALS INC-2013-008041

PATIENT
  Age: 13 Year
  Sex: Male
  Weight: 38 kg

DRUGS (4)
  1. KALYDECO [Suspect]
     Indication: CYSTIC FIBROSIS
     Dosage: 150 MG, BID
     Dates: start: 201303
  2. OMEPRAZOLE [Concomitant]
     Dosage: 10 MG, BID
  3. MOTILIUM [Concomitant]
     Dosage: 10 MG, TID
  4. VITAMIN K [Concomitant]
     Dosage: 10 MG, QD

REACTIONS (4)
  - Grand mal convulsion [Recovered/Resolved]
  - Head injury [Unknown]
  - Postictal state [Recovered/Resolved]
  - Tongue biting [Unknown]
